FAERS Safety Report 12751557 (Version 1)
Quarter: 2016Q3

REPORT INFORMATION
  Report Type: Spontaneous
  Country: JP (occurrence: JP)
  Receive Date: 20160915
  Receipt Date: 20160915
  Transmission Date: 20161109
  Serious: Yes (Hospitalization, Other)
  Sender: FDA-Public Use
  Company Number: JP-GILEAD-2016-0232516

PATIENT
  Age: 56 Year
  Sex: Male

DRUGS (1)
  1. HEPSERA [Suspect]
     Active Substance: ADEFOVIR DIPIVOXIL
     Indication: HEPATITIS B
     Dosage: UNK
     Route: 048

REACTIONS (15)
  - Chronic kidney disease [Unknown]
  - Hypophosphataemia [Unknown]
  - Renal tubular acidosis [Unknown]
  - Pain in extremity [Unknown]
  - Urine phosphorus increased [Unknown]
  - Tibia fracture [Unknown]
  - Dyspnoea [Unknown]
  - Oedema [Unknown]
  - Blood alkaline phosphatase increased [Unknown]
  - Osteomalacia [Unknown]
  - Fanconi syndrome acquired [Unknown]
  - Pathological fracture [Unknown]
  - Amino acid level increased [Unknown]
  - Drug level increased [Unknown]
  - Femoral neck fracture [Unknown]
